FAERS Safety Report 10970062 (Version 1)
Quarter: 2015Q1

REPORT INFORMATION
  Report Type: Spontaneous
  Country: US (occurrence: None)
  Receive Date: 20150226
  Receipt Date: 20150226
  Transmission Date: 20150721
  Serious: No
  Sender: FDA-Public Use
  Company Number: TPA2009A01355

PATIENT
  Age: 60 Year
  Sex: Male
  Weight: 87.9 kg

DRUGS (16)
  1. ULORIC [Suspect]
     Active Substance: FEBUXOSTAT
     Indication: GOUT
     Dosage: 1 IN 1 D
     Route: 048
     Dates: start: 20090521, end: 20090528
  2. ASPIRIN (ACETYLSALICYLIC ACID) [Concomitant]
     Active Substance: ASPIRIN
  3. NEORAL [Concomitant]
     Active Substance: CYCLOSPORINE
  4. COLCHICINE. [Concomitant]
     Active Substance: COLCHICINE
  5. LANTUS [Concomitant]
     Active Substance: INSULIN GLARGINE
  6. ALLOPURINOL. [Concomitant]
     Active Substance: ALLOPURINOL
  7. MULTIVITAMINS (ERGOCALCIFEROL, ASCORBIC ACID, FOLIC ACID, THIAMINE HYDROCHLORIDE, RETINOL, RIBOFLAVIN, NICOTINAMIDE, PANTHENOL) [Concomitant]
  8. BYSTOLIC (ALL OTHER THERAPEUTIC PRODUCTS) [Concomitant]
  9. CALCIUM D (ERGOCALCIFEROL, CALCIUM PHOSPHATE, CALCIUM SODIUM LACTATE) [Concomitant]
  10. CLONIDINE HCL (CLONIDINE HYDROCHLORIDE) [Concomitant]
  11. ISONIAZID. [Concomitant]
     Active Substance: ISONIAZID
  12. LISINOPRIL. [Concomitant]
     Active Substance: LISINOPRIL
  13. MYFORTIC (MYCOPHENOLATE SODIUM) [Concomitant]
  14. PREDNISONE. [Concomitant]
     Active Substance: PREDNISONE
  15. LOVASTATIN. [Concomitant]
     Active Substance: LOVASTATIN
  16. NOVOLOG [Concomitant]
     Active Substance: INSULIN ASPART

REACTIONS (2)
  - Skin exfoliation [None]
  - Plantar erythema [None]

NARRATIVE: CASE EVENT DATE: 20090523
